FAERS Safety Report 12767384 (Version 1)
Quarter: 2016Q3

REPORT INFORMATION
  Report Type: Spontaneous
  Country: None (occurrence: US)
  Receive Date: 20160917
  Receipt Date: 20160917
  Transmission Date: 20161109
  Serious: No
  Sender: FDA-Public Use
  Company Number: None

PATIENT
  Sex: Male

DRUGS (1)
  1. IMATINIB 400 MG SUN PHARMACEUTICALS [Suspect]
     Active Substance: IMATINIB
     Indication: MYELOID LEUKAEMIA
     Route: 048
     Dates: start: 20160609

REACTIONS (10)
  - Pancreatic enzymes increased [None]
  - Abdominal discomfort [None]
  - Vomiting [None]
  - Hepatic enzyme increased [None]
  - Drug intolerance [None]
  - Impaired work ability [None]
  - Nausea [None]
  - Mouth ulceration [None]
  - Product substitution issue [None]
  - Gastrointestinal pain [None]
